FAERS Safety Report 9234229 (Version 1)
Quarter: 2013Q2

REPORT INFORMATION
  Report Type: Spontaneous
  Country: AR (occurrence: AR)
  Receive Date: 20130416
  Receipt Date: 20130416
  Transmission Date: 20140414
  Serious: Yes (Other)
  Sender: FDA-Public Use
  Company Number: AR-PFIZER INC-2013114506

PATIENT
  Age: 52 Year
  Sex: Male

DRUGS (9)
  1. ETOPOSIDE [Suspect]
     Indication: EXTRANODAL NK/T-CELL LYMPHOMA, NASAL TYPE
     Dosage: 100 MG/M2, ON DAYS 2-4
     Route: 042
  2. DOXORUBICIN HCL [Suspect]
     Indication: EXTRANODAL NK/T-CELL LYMPHOMA, NASAL TYPE
     Dosage: UNK
  3. DEXAMETHASONE SODIUM PHOSPHATE [Suspect]
     Indication: EXTRANODAL NK/T-CELL LYMPHOMA, NASAL TYPE
     Dosage: 40 MG/BODY, ON DAYS 2-4
     Route: 042
  4. METHOTREXATE [Suspect]
     Indication: EXTRANODAL NK/T-CELL LYMPHOMA, NASAL TYPE
     Dosage: 2 G/M2, OVER 6 H ON DAY 1
     Route: 042
  5. IFOSFAMIDE [Suspect]
     Indication: EXTRANODAL NK/T-CELL LYMPHOMA, NASAL TYPE
     Dosage: 1.5 G/M2, ON DAYS 2-4
     Route: 042
  6. VINCRISTINE [Suspect]
     Indication: EXTRANODAL NK/T-CELL LYMPHOMA, NASAL TYPE
     Dosage: UNK
  7. CYCLOPHOSPHAMIDE [Suspect]
     Indication: EXTRANODAL NK/T-CELL LYMPHOMA, NASAL TYPE
     Dosage: UNK
  8. L-ASPARAGINASE [Suspect]
     Indication: EXTRANODAL NK/T-CELL LYMPHOMA, NASAL TYPE
     Dosage: 6000 U/M2 ON DAYS 8,10,12,14,16,18 AND 20
  9. PREDNISONE [Suspect]
     Indication: EXTRANODAL NK/T-CELL LYMPHOMA, NASAL TYPE
     Dosage: UNK

REACTIONS (7)
  - Haematotoxicity [Unknown]
  - Neutropenia [Unknown]
  - Mucosal inflammation [Unknown]
  - Pyrexia [Unknown]
  - Off label use [Unknown]
  - Multi-organ disorder [None]
  - Septic shock [None]
